FAERS Safety Report 19677182 (Version 3)
Quarter: 2022Q2

REPORT INFORMATION
  Report Type: Spontaneous
  Country: US (occurrence: US)
  Receive Date: 20210809
  Receipt Date: 20220406
  Transmission Date: 20220720
  Serious: No
  Sender: FDA-Public Use
  Company Number: US-PFIZER INC-2021372812

PATIENT
  Age: 63 Year
  Sex: Female

DRUGS (2)
  1. IBRANCE [Suspect]
     Active Substance: PALBOCICLIB
     Indication: Breast cancer female
     Dosage: 100 MG
  2. IBRANCE [Suspect]
     Active Substance: PALBOCICLIB
     Indication: Breast cancer metastatic

REACTIONS (6)
  - Abdominal pain upper [Unknown]
  - Illness [Unknown]
  - Drug intolerance [Unknown]
  - Feeling abnormal [Unknown]
  - Fatigue [Unknown]
  - Depressed mood [Unknown]
